FAERS Safety Report 5639147-0 (Version None)
Quarter: 2008Q1

REPORT INFORMATION
  Report Type: 
  Country: None (occurrence: None)
  Receive Date: 20080226
  Receipt Date: 20080214
  Transmission Date: 20080703
  Serious: Yes (Other)
  Sender: FDA-Public Use
  Company Number: US-ELI_LILLY_AND_COMPANY-US200801002724

PATIENT
  Sex: Female

DRUGS (3)
  1. FORTEO [Suspect]
     Indication: OSTEOPOROSIS
     Route: 058
     Dates: start: 20070401
  2. HUMALOG [Suspect]
     Dosage: 12 U, UNK
     Route: 058
     Dates: start: 20070101
  3. LANTUS [Concomitant]
     Dosage: 29 U, UNK
     Route: 058
     Dates: start: 20070101

REACTIONS (5)
  - BLOOD GLUCOSE DECREASED [None]
  - CORONARY ARTERY BYPASS [None]
  - HYPOGLYCAEMIA [None]
  - LOSS OF CONSCIOUSNESS [None]
  - UNRESPONSIVE TO STIMULI [None]
